FAERS Safety Report 4950156-7 (Version None)
Quarter: 2006Q1

REPORT INFORMATION
  Report Type: 
  Country: None (occurrence: None)
  Receive Date: 20060316
  Receipt Date: 20060310
  Transmission Date: 20060701
  Serious: Yes (Hospitalization)
  Sender: FDA-Public Use
  Company Number: 200610131BFR

PATIENT
  Age: 70 Year
  Sex: Male
  Weight: 70 kg

DRUGS (10)
  1. MOXIFLOXACIN HYDROCHLORIDE [Suspect]
     Indication: BRONCHOPNEUMONIA
     Dosage: 400 MG, QD, ORAL
     Route: 048
     Dates: start: 20051213, end: 20051220
  2. LERCANIDIPINE [Suspect]
     Indication: DEPRESSION
     Dosage: ORAL
     Route: 048
     Dates: start: 20051220, end: 20060110
  3. FORTZAAR [Suspect]
     Dosage: QD, ORAL
     Route: 048
     Dates: start: 20041215, end: 20060110
  4. PNEUMOREL (FENSPIRIDE HYDROCHLORIDE) [Suspect]
     Indication: BRONCHOPNEUMONIA
     Dosage: TID, ORAL
     Route: 048
     Dates: start: 20051213, end: 20051223
  5. PROZAC [Concomitant]
  6. THERALENE [Concomitant]
  7. NOCTAMIDE [Concomitant]
  8. TRANXENE [Concomitant]
  9. CELESTENE [Concomitant]
  10. SURBRONC [Concomitant]

REACTIONS (1)
  - IDIOPATHIC THROMBOCYTOPENIC PURPURA [None]
